FAERS Safety Report 5140140-5 (Version None)
Quarter: 2006Q4

REPORT INFORMATION
  Report Type: 
  Country: None (occurrence: None)
  Receive Date: 20061025
  Receipt Date: 20061025
  Transmission Date: 20070319
  Serious: Yes (Other)
  Sender: FDA-Public Use
  Company Number: None

PATIENT
  Age: 68 Year
  Sex: Male
  Weight: 69.9 kg

DRUGS (3)
  1. FLUVASTATIN [Suspect]
  2. EPIPEN [Concomitant]
  3. LOVASTATIN [Concomitant]

REACTIONS (1)
  - MYALGIA [None]
